FAERS Safety Report 24993472 (Version 1)
Quarter: 2025Q1

REPORT INFORMATION
  Report Type: Spontaneous
  Country: FR (occurrence: FR)
  Receive Date: 20250221
  Receipt Date: 20250221
  Transmission Date: 20250409
  Serious: Yes (Other)
  Sender: AUROBINDO
  Company Number: FR-AFSSAPS-CN2025000136

PATIENT
  Age: 48 Year
  Sex: Male

DRUGS (3)
  1. CLOZAPINE [Suspect]
     Active Substance: CLOZAPINE
     Indication: Schizophrenia
     Dosage: 400 MILLIGRAM, ONCE A DAY [400 MG LE SOIR]
     Route: 048
     Dates: start: 2018
  2. VALPROMIDE [Concomitant]
     Active Substance: VALPROMIDE
     Indication: Schizophrenia
     Dosage: 1200 MILLIGRAM, ONCE A DAY [1200 MG LE SOIR]
     Route: 048
     Dates: start: 2018
  3. XANAX [Concomitant]
     Active Substance: ALPRAZOLAM
     Indication: Schizophrenia
     Route: 048
     Dates: start: 202412

REACTIONS (1)
  - Myocardial ischaemia [Recovered/Resolved]

NARRATIVE: CASE EVENT DATE: 20250105
